FAERS Safety Report 4286100-8 (Version None)
Quarter: 2004Q1

REPORT INFORMATION
  Report Type: 
  Country: None (occurrence: None)
  Receive Date: 20040120
  Receipt Date: 20030801
  Transmission Date: 20041129
  Serious: Yes (Hospitalization)
  Sender: FDA-Public Use
  Company Number: ENZ-ABE-127

PATIENT
  Age: 60 Year
  Sex: Male

DRUGS (1)
  1. ABELCET [Suspect]
     Indication: FUNGAL INFECTION
     Dosage: 5 MG/KG IV
     Route: 042

REACTIONS (1)
  - HYPOKALAEMIA [None]
